FAERS Safety Report 21392949 (Version 2)
Quarter: 2023Q2

REPORT INFORMATION
  Report Type: Report from Study
  Country: US (occurrence: US)
  Receive Date: 20220929
  Receipt Date: 20230630
  Transmission Date: 20230722
  Serious: Yes (Other)
  Sender: FDA-Public Use
  Company Number: US-JAZZ-2022-US-024486

PATIENT
  Sex: Female
  Weight: 69.841 kg

DRUGS (1)
  1. EPIDIOLEX [Suspect]
     Active Substance: CANNABIDIOL
     Indication: Epilepsy
     Dosage: 3.6 MILLILITER, BID
     Route: 048
     Dates: start: 20220629

REACTIONS (5)
  - Seizure [Unknown]
  - Condition aggravated [Unknown]
  - Migraine [Unknown]
  - Diarrhoea [Unknown]
  - Vomiting [Unknown]
